FAERS Safety Report 20681172 (Version 10)
Quarter: 2024Q4

REPORT INFORMATION
  Report Type: Report from Study
  Country: CA (occurrence: CA)
  Receive Date: 20220406
  Receipt Date: 20241010
  Transmission Date: 20250115
  Serious: Yes (Other)
  Sender: ROCHE
  Company Number: CA-ROCHE-2972503

PATIENT
  Age: 58 Year
  Sex: Male

DRUGS (8)
  1. OCREVUS [Suspect]
     Active Substance: OCRELIZUMAB
     Indication: Relapsing-remitting multiple sclerosis
     Dosage: 300 MG AT DAY 0 AND 14, THEN 600 MG EVERY 5 MONTH
     Route: 042
     Dates: start: 20180830
  2. OCREVUS [Suspect]
     Active Substance: OCRELIZUMAB
     Dosage: 600 MG EVERY 5 MONTH
     Route: 042
  3. PFIZER-BIONTECH COVID-19 VACCINE [Suspect]
     Active Substance: TOZINAMERAN
     Indication: COVID-19
     Dosage: 2 DOSES IN AUG AND NOV 2021
     Route: 065
  4. CELEBREX [Concomitant]
     Active Substance: CELECOXIB
  5. HYDROMORPHONE [Concomitant]
     Active Substance: HYDROMORPHONE
  6. LYRICA [Concomitant]
     Active Substance: PREGABALIN
  7. ASPIRIN [Concomitant]
     Active Substance: ASPIRIN
  8. TYLENOL [Concomitant]
     Active Substance: ACETAMINOPHEN

REACTIONS (16)
  - Hemiparesis [Recovering/Resolving]
  - Multiple sclerosis [Recovered/Resolved]
  - Memory impairment [Not Recovered/Not Resolved]
  - Somnolence [Recovered/Resolved]
  - Migraine [Recovering/Resolving]
  - Skin ulcer [Unknown]
  - Herpes zoster [Recovering/Resolving]
  - Fatigue [Recovered/Resolved]
  - Oral herpes [Not Recovered/Not Resolved]
  - Blister [Recovered/Resolved]
  - Pruritus [Recovered/Resolved]
  - Skin irritation [Not Recovered/Not Resolved]
  - Fatigue [Recovering/Resolving]
  - Off label use [Unknown]
  - Off label use [Unknown]
  - Gait disturbance [Unknown]
